FAERS Safety Report 26092347 (Version 1)
Quarter: 2025Q4

REPORT INFORMATION
  Report Type: Spontaneous
  Country: US (occurrence: None)
  Receive Date: 20251125
  Receipt Date: 20251125
  Transmission Date: 20260117
  Serious: Yes (Hospitalization)
  Sender: FDA-CTU
  Company Number: None

PATIENT
  Age: 50 Year
  Sex: Female
  Weight: 43.9 kg

DRUGS (1)
  1. INFED [Suspect]
     Active Substance: IRON DEXTRAN
     Route: 040
     Dates: start: 20251125, end: 20251125

REACTIONS (9)
  - Vomiting [None]
  - Flushing [None]
  - Hyperhidrosis [None]
  - Abdominal pain [None]
  - Infusion related reaction [None]
  - Therapy interrupted [None]
  - Blood pressure decreased [None]
  - Heart rate increased [None]
  - Cardio-respiratory arrest [None]

NARRATIVE: CASE EVENT DATE: 20251125
